FAERS Safety Report 7674915-5 (Version None)
Quarter: 2011Q3

REPORT INFORMATION
  Report Type: 
  Country: None (occurrence: None)
  Receive Date: 20110810
  Receipt Date: 20110728
  Transmission Date: 20111222
  Serious: Yes (Other)
  Sender: FDA-Public Use
  Company Number: ES-ELI_LILLY_AND_COMPANY-ES201106002753

PATIENT
  Sex: Female

DRUGS (4)
  1. CYMBALTA [Suspect]
     Dosage: UNK, UNKNOWN
  2. ACETYLSALICYLIC ACID SRT [Concomitant]
  3. VOLTAREN                                /SCH/ [Concomitant]
  4. CYMBALTA [Suspect]
     Dosage: 60 MG, QD

REACTIONS (3)
  - INFECTIOUS PERITONITIS [None]
  - GASTROINTESTINAL HAEMORRHAGE [None]
  - BENIGN GASTROINTESTINAL NEOPLASM [None]
